FAERS Safety Report 19375716 (Version 1)
Quarter: 2021Q2

REPORT INFORMATION
  Report Type: Spontaneous
  Country: US (occurrence: US)
  Receive Date: 20210604
  Receipt Date: 20210604
  Transmission Date: 20210717
  Serious: No
  Sender: FDA-Public Use
  Company Number: US-BRECKENRIDGE PHARMACEUTICAL, INC.-2112356

PATIENT
  Age: 77 Year
  Sex: Female
  Weight: 61.36 kg

DRUGS (4)
  1. DULOXETINE. [Suspect]
     Active Substance: DULOXETINE
     Indication: BACK PAIN
     Route: 048
  2. ZOLPIDEM [Concomitant]
     Active Substance: ZOLPIDEM TARTRATE
  3. PRAVASTATIN. [Concomitant]
     Active Substance: PRAVASTATIN
  4. LEVOTHYROXINE. [Concomitant]
     Active Substance: LEVOTHYROXINE

REACTIONS (2)
  - Malaise [None]
  - Electric shock sensation [None]
